FAERS Safety Report 21350236 (Version 1)
Quarter: 2022Q3

REPORT INFORMATION
  Report Type: Spontaneous
  Country: CN (occurrence: CN)
  Receive Date: 20220919
  Receipt Date: 20220919
  Transmission Date: 20221026
  Serious: Yes (Other)
  Sender: FDA-Public Use
  Company Number: CN-BAUSCHBL-2022BNL000186

PATIENT
  Age: 10 Year
  Sex: Female
  Weight: 32 kg

DRUGS (2)
  1. TROPICAMIDE [Suspect]
     Active Substance: TROPICAMIDE
     Indication: Myopia
     Route: 047
     Dates: start: 20220814, end: 20220824
  2. RACEANISODAMINE [Suspect]
     Active Substance: RACEANISODAMINE
     Indication: Myopia
     Route: 047
     Dates: start: 20220814, end: 20220824

REACTIONS (2)
  - Instillation site erythema [Recovering/Resolving]
  - Instillation site discharge [Recovering/Resolving]

NARRATIVE: CASE EVENT DATE: 20220821
